FAERS Safety Report 19031153 (Version 1)
Quarter: 2021Q1

REPORT INFORMATION
  Report Type: Spontaneous
  Country: US (occurrence: US)
  Receive Date: 20210319
  Receipt Date: 20210319
  Transmission Date: 20210420
  Serious: Yes (Hospitalization)
  Sender: FDA-Public Use
  Company Number: None

PATIENT
  Age: 43 Year
  Sex: Female

DRUGS (11)
  1. ATORVASTATIN [Concomitant]
     Active Substance: ATORVASTATIN
  2. ONDANSETRON [Concomitant]
     Active Substance: ONDANSETRON
  3. PRASUGREL. [Concomitant]
     Active Substance: PRASUGREL
  4. GLATIRAMER [Suspect]
     Active Substance: GLATIRAMER
     Indication: MULTIPLE SCLEROSIS
     Route: 058
     Dates: start: 20200422
  5. OXYCODONE AND ACETAMINOPHEN [Concomitant]
     Active Substance: ACETAMINOPHEN\OXYCODONE HYDROCHLORIDE
  6. GLATIRAMER [Suspect]
     Active Substance: GLATIRAMER
     Indication: COUGH
     Route: 058
     Dates: start: 20200422
  7. OMEPRAZOLE. [Concomitant]
     Active Substance: OMEPRAZOLE
  8. DEXTROAMPHET SACCHARAT, AMPHET ASPARTATE, DEXTROAMPHET SULFATE AND AMPHET SULFAT [Concomitant]
     Active Substance: AMPHETAMINE ASPARTATE\AMPHETAMINE SULFATE\DEXTROAMPHETAMINE SACCHARATE\DEXTROAMPHETAMINE SULFATE
  9. DOXYCYC MONO [Concomitant]
     Active Substance: DOXYCYCLINE
  10. HYDROXYCHLOR [Concomitant]
     Active Substance: HYDROXYCHLOROQUINE
  11. NP THYROID [Concomitant]
     Active Substance: LEVOTHYROXINE\LIOTHYRONINE

REACTIONS (3)
  - Coronary artery disease [None]
  - Condition aggravated [None]
  - Therapy interrupted [None]

NARRATIVE: CASE EVENT DATE: 20210318
